FAERS Safety Report 9888213 (Version 1)
Quarter: 2014Q1

REPORT INFORMATION
  Report Type: Spontaneous
  Country: US (occurrence: None)
  Receive Date: 20140210
  Receipt Date: 20140210
  Transmission Date: 20141002
  Serious: Yes (Life-Threatening, Hospitalization)
  Sender: FDA-Public Use
  Company Number: None

PATIENT
  Age: 56 Year
  Sex: Female
  Weight: 97.52 kg

DRUGS (2)
  1. TYLENOL #3 [Suspect]
     Indication: JOINT SURGERY
  2. TYLENOL #3 [Suspect]
     Indication: TOOTH EXTRACTION

REACTIONS (2)
  - Skin reaction [None]
  - Poisoning [None]
